FAERS Safety Report 8810620 (Version 1)
Quarter: 2012Q4

REPORT INFORMATION
  Report Type: 
  Country: FR (occurrence: FR)
  Receive Date: 20120927
  Receipt Date: 20120927
  Transmission Date: 20130627
  Serious: Yes (Hospitalization)
  Sender: FDA-Public Use
  Company Number: FR-MERCK-1209FRA008844

PATIENT
  Age: 64 Year
  Sex: Female

DRUGS (13)
  1. TIENAM 500MG/500MG, POUDRE POUR PERFUSION [Suspect]
     Dosage: 1 g, tid
     Route: 042
     Dates: start: 20120818, end: 20120826
  2. ACUPAN [Suspect]
     Dosage: UNK
     Dates: start: 20120822, end: 20120826
  3. COLIMYCINE [Suspect]
     Dosage: UNK
     Dates: start: 20120818, end: 20120826
  4. SOLU-MEDROL [Concomitant]
  5. INEXIUM [Concomitant]
  6. ACETAMINOPHEN [Concomitant]
  7. LOVENOX [Concomitant]
  8. RILUTEK [Concomitant]
  9. ATARAX (ALPRAZOLAM) [Concomitant]
  10. RESOLOR [Concomitant]
     Dosage: UNK
     Dates: start: 20120819
  11. TEMESTA [Concomitant]
  12. FORLAX [Concomitant]
  13. ACTISKENAN [Concomitant]

REACTIONS (2)
  - Skin reaction [Recovered/Resolved]
  - Urticaria [None]
